FAERS Safety Report 15152719 (Version 3)
Quarter: 2019Q3

REPORT INFORMATION
  Report Type: Spontaneous
  Country: GB (occurrence: GB)
  Receive Date: 20180717
  Receipt Date: 20190708
  Transmission Date: 20191004
  Serious: Yes (Other)
  Sender: FDA-Public Use
  Company Number: GB-009507513-1612GBR002748

PATIENT
  Age: 47 Year
  Sex: Female

DRUGS (8)
  1. RALTEGRAVIR POTASSIUM [Suspect]
     Active Substance: RALTEGRAVIR POTASSIUM
     Indication: PRODUCT USED FOR UNKNOWN INDICATION
     Dosage: TOTAL DAILY DOSE: 800  (UNITS NOT REPORTED), QD
     Route: 048
     Dates: start: 2013
  2. RITONAVIR. [Suspect]
     Active Substance: RITONAVIR
     Indication: PRODUCT USED FOR UNKNOWN INDICATION
     Dosage: DOSAGE FORM: UNSPECIFIED, TOTAL DAILY DOSE: 100 (UNITS NOT REPORTED)
     Route: 048
     Dates: start: 2013
  3. NEVIRAPINE. [Suspect]
     Active Substance: NEVIRAPINE
     Dosage: DOSAGE FORM: UNSPECIFIED, TOTAL DAILY DOSE: 400 (UNITS NOT PROVIDED)
     Route: 048
  4. LAMIVUDINE AND ZIDOVUDINE [Suspect]
     Active Substance: LAMIVUDINE\ZIDOVUDINE
     Indication: PRODUCT USED FOR UNKNOWN INDICATION
     Dosage: DOSAGE FORM: UNSPECIFIED
     Route: 048
  5. DARUNAVIR [Suspect]
     Active Substance: DARUNAVIR
     Indication: PRODUCT USED FOR UNKNOWN INDICATION
     Dosage: TOTAL DAILY DOSE: 1200(UNITS NOT REPORTED)
     Route: 048
     Dates: start: 2013, end: 2013
  6. NEVIRAPINE. [Suspect]
     Active Substance: NEVIRAPINE
     Indication: PRODUCT USED FOR UNKNOWN INDICATION
     Dosage: TOTAL DAILY DOSE: 400(UNITS NOT PROVIDED)
     Route: 048
  7. RITONAVIR. [Suspect]
     Active Substance: RITONAVIR
     Dosage: DOSAGE FORM: UNSPECIFIED, TOTAL DAILY DOSE: 200 (UNITS NOT REPORTED)
     Route: 048
  8. EMTRICITABINE (+) TENOFOVIR DISOPROXIL FUMARATE [Suspect]
     Active Substance: EMTRICITABINE\TENOFOVIR DISOPROXIL
     Indication: PRODUCT USED FOR UNKNOWN INDICATION
     Dosage: DOSAGE FORM: UNSPECIFIED; 1 DOSAGE FORM, QD
     Route: 048
     Dates: start: 2013

REACTIONS (2)
  - Maternal exposure during pregnancy [Recovered/Resolved]
  - Premature delivery [Recovered/Resolved]

NARRATIVE: CASE EVENT DATE: 20140105
